FAERS Safety Report 6385031-7 (Version None)
Quarter: 2009Q4

REPORT INFORMATION
  Report Type: 
  Country: None (occurrence: None)
  Receive Date: 20091002
  Receipt Date: 20090928
  Transmission Date: 20100525
  Serious: Yes (Hospitalization)
  Sender: FDA-Public Use
  Company Number: CO-B.I. PHARMACEUTICALS,INC./RIDGEFIELD-2009-RA-00230RA

PATIENT
  Sex: Female
  Weight: 14 kg

DRUGS (3)
  1. COMBIVENT [Suspect]
     Indication: COUGH
     Dosage: 8 PUFFS
     Route: 055
     Dates: end: 20090827
  2. COMBIVENT [Suspect]
     Indication: ALLERGIC BRONCHITIS
  3. SULFU010 [Concomitant]
     Indication: COUGH
     Route: 048

REACTIONS (5)
  - ALLERGIC BRONCHITIS [None]
  - COUGH [None]
  - LOWER RESPIRATORY TRACT INFLAMMATION [None]
  - RASH [None]
  - SINUSITIS [None]
